FAERS Safety Report 6741075-4 (Version None)
Quarter: 2010Q2

REPORT INFORMATION
  Report Type: 
  Country: None (occurrence: None)
  Receive Date: 20100526
  Receipt Date: 20100521
  Transmission Date: 20101027
  Serious: Yes (Other)
  Sender: FDA-Public Use
  Company Number: AU-WYE-G05634210

PATIENT
  Sex: Male
  Weight: 90 kg

DRUGS (6)
  1. PRISTIQ [Suspect]
     Indication: DEPRESSION
     Route: 048
     Dates: start: 20091009, end: 20091021
  2. LIPITOR [Concomitant]
     Indication: BLOOD CHOLESTEROL
     Route: 048
  3. OXAZEPAM [Concomitant]
     Indication: SLEEP DISORDER
     Dosage: 30MG 0.5-1 TABLET AT NIGHT
     Route: 048
  4. ALPRAZOLAM [Concomitant]
     Indication: ANXIETY
     Route: 048
  5. ALPRAZOLAM [Concomitant]
     Indication: POST-TRAUMATIC STRESS DISORDER
  6. WARFARIN SODIUM [Concomitant]
     Indication: THROMBOLYSIS
     Dosage: 3MG DAILY
     Route: 048

REACTIONS (2)
  - FEELING ABNORMAL [None]
  - PSYCHOTIC DISORDER [None]
